FAERS Safety Report 6681435 (Version 11)
Quarter: 2014Q2

REPORT INFORMATION
  Report Type: Spontaneous
  Country: US (occurrence: US)
  Receive Date: 20080626
  Receipt Date: 20140605
  Transmission Date: 20141212
  Serious: Yes (Other)
  Sender: FDA-Public Use
  Company Number: US-WATSON-2007-03797

PATIENT
  Sex: Female
  Weight: 68 kg

DRUGS (4)
  1. LORAZEPAM (WATSON LABORATORIES) [Suspect]
     Indication: ANXIETY
     Dosage: 1-2 MG, TID-QID
     Dates: start: 200602
  2. LORAZEPAM (WATSON LABORATORIES) [Suspect]
     Indication: ANXIETY
     Dosage: UNK, UNKNOWN
     Route: 048
  3. VITAMINS [Concomitant]
     Indication: PRODUCT USED FOR UNKNOWN INDICATION
     Dosage: UNK, UNKNOWN
  4. CALCIUM [Concomitant]
     Indication: PRODUCT USED FOR UNKNOWN INDICATION
     Dosage: UNK, UNKNOWN

REACTIONS (53)
  - Convulsion [Unknown]
  - Muscle spasms [Unknown]
  - Drug ineffective [Unknown]
  - Fluid retention [Unknown]
  - Respiratory tract congestion [Unknown]
  - Blood sodium increased [Unknown]
  - Constipation [Unknown]
  - Somnolence [Unknown]
  - Deafness [Unknown]
  - Hypertension [Unknown]
  - Gastrointestinal obstruction [Unknown]
  - Inflammation [Unknown]
  - Cerebrovascular accident [Unknown]
  - Myocardial infarction [Unknown]
  - Middle ear effusion [Unknown]
  - Muscle disorder [Unknown]
  - Breast swelling [Unknown]
  - Myalgia [Unknown]
  - Electroencephalogram abnormal [Unknown]
  - Blood sodium decreased [Unknown]
  - Oedema [Not Recovered/Not Resolved]
  - Weight increased [Not Recovered/Not Resolved]
  - Musculoskeletal stiffness [Not Recovered/Not Resolved]
  - Functional gastrointestinal disorder [Not Recovered/Not Resolved]
  - Clumsiness [Unknown]
  - Dizziness [Unknown]
  - Headache [Unknown]
  - Asthenia [Unknown]
  - Balance disorder [Unknown]
  - Depression [Unknown]
  - Decreased appetite [Unknown]
  - Dyspepsia [Unknown]
  - Muscle rigidity [Unknown]
  - Myositis [Unknown]
  - Muscle contracture [Unknown]
  - Blood electrolytes increased [Unknown]
  - Swelling [Unknown]
  - Neurogenic bladder [Unknown]
  - Gastrointestinal motility disorder [Unknown]
  - Tinnitus [Unknown]
  - Bone disorder [Unknown]
  - Sensory disturbance [Unknown]
  - Diarrhoea [Unknown]
  - Gastrointestinal disorder [Unknown]
  - Shock [Unknown]
  - Pharyngeal oedema [Unknown]
  - Tracheal oedema [Unknown]
  - Dyspnoea [Unknown]
  - Asthma [Unknown]
  - Hyperhidrosis [Unknown]
  - Bronchitis [Not Recovered/Not Resolved]
  - Sinus disorder [Not Recovered/Not Resolved]
  - Abdominal pain [Unknown]
